FAERS Safety Report 10055829 (Version 1)
Quarter: 2014Q2

REPORT INFORMATION
  Report Type: Other
  Country: GB (occurrence: GB)
  Receive Date: 20140403
  Receipt Date: 20140403
  Transmission Date: 20141212
  Serious: Yes (Death, Other)
  Sender: FDA-Public Use
  Company Number: GB-PERRIGO-14GB003393

PATIENT
  Sex: Female

DRUGS (6)
  1. IBUPROFEN 16028/0027 200 MG [Suspect]
     Indication: SURGERY
     Dosage: UNK
     Route: 065
  2. ELIQUIS [Suspect]
     Indication: JOINT ARTHROPLASTY
     Dosage: UNK
     Route: 065
  3. METFORMIN [Suspect]
     Indication: DIABETES MELLITUS
     Dosage: UNK
     Route: 065
  4. NAPROXEN [Concomitant]
     Indication: PRODUCT USED FOR UNKNOWN INDICATION
     Dosage: UNK
     Route: 065
  5. RAMIPRIL [Concomitant]
     Indication: PRODUCT USED FOR UNKNOWN INDICATION
     Dosage: UNK
     Route: 065
  6. GENTAMYCIN [Suspect]
     Indication: INFECTION
     Route: 065

REACTIONS (4)
  - Creatinine renal clearance abnormal [Unknown]
  - Drug interaction [Unknown]
  - Infection [Unknown]
  - Death [Fatal]
